FAERS Safety Report 6402705-X (Version None)
Quarter: 2009Q4

REPORT INFORMATION
  Report Type: 
  Country: None (occurrence: None)
  Receive Date: 20091009
  Receipt Date: 20090929
  Transmission Date: 20100525
  Serious: Yes (Other)
  Sender: FDA-Public Use
  Company Number: 001793

PATIENT
  Age: 45 Year
  Sex: Female

DRUGS (2)
  1. NEUPRO [Suspect]
     Dosage: 22 MG 1X/24 HOURS; CONSECUTIVE FOR SEVERAL DAYS (ALL IN ALL 22MG); TRANSDERMAL
     Route: 062
     Dates: start: 20090301
  2. STALEVO 100 [Concomitant]

REACTIONS (2)
  - FLUID RETENTION [None]
  - RASH [None]
